FAERS Safety Report 19180386 (Version 1)
Quarter: 2021Q2

REPORT INFORMATION
  Report Type: Spontaneous
  Country: US (occurrence: US)
  Receive Date: 20210426
  Receipt Date: 20210426
  Transmission Date: 20210717
  Serious: Yes (Hospitalization)
  Sender: FDA-Public Use
  Company Number: US-MYLANLABS-2021M1023834

PATIENT
  Age: 5 Day
  Sex: Female

DRUGS (7)
  1. MIDAZOLAM. [Suspect]
     Active Substance: MIDAZOLAM
     Indication: SEIZURE
     Dosage: LATER, THE DOSE WAS MAXIMIZED.
  2. SODIUM BENZOATE W/SODIUM PHENYLACETATE [Concomitant]
     Indication: HYPERAMMONAEMIC CRISIS
     Dosage: STOPPED AND RESUMED ONCE...
     Route: 042
  3. PHENOBARBITAL. [Suspect]
     Active Substance: PHENOBARBITAL
     Indication: SEIZURE
     Dosage: LOADING DOSE
     Route: 065
  4. PHENOBARBITAL. [Suspect]
     Active Substance: PHENOBARBITAL
     Indication: SEIZURE
     Dosage: MAXIMUM DOSE THROUGH...
  5. FOSPHENYTOIN [Suspect]
     Active Substance: FOSPHENYTOIN
     Indication: SEIZURE
     Dosage: LATER, THE DOSE WAS MAXIMISED.
  6. TOPIRAMATE. [Concomitant]
     Active Substance: TOPIRAMATE
     Indication: SEIZURE
     Dosage: MAINTENANCE DOSE
     Route: 065
  7. LEVETIRACETAM. [Suspect]
     Active Substance: LEVETIRACETAM
     Indication: SEIZURE
     Dosage: LATER, THE DOSE WAS MAXIMISED.

REACTIONS (1)
  - Drug ineffective [Unknown]
